FAERS Safety Report 21125497 (Version 2)
Quarter: 2022Q4

REPORT INFORMATION
  Report Type: Spontaneous
  Country: US (occurrence: US)
  Receive Date: 20220725
  Receipt Date: 20221219
  Transmission Date: 20230112
  Serious: Yes (Hospitalization)
  Sender: FDA-Public Use
  Company Number: US-MEDEXUS PHARMA, INC.-2022MED00271

PATIENT
  Sex: Female
  Weight: 93.424 kg

DRUGS (7)
  1. RASUVO [Suspect]
     Active Substance: METHOTREXATE SODIUM
     Indication: Rheumatoid arthritis
     Dosage: 17.5 MG INJECTED IN THIGH, 1X/WEEK
     Dates: end: 202205
  2. RASUVO [Suspect]
     Active Substance: METHOTREXATE SODIUM
     Indication: Arthritis
     Dosage: 17.5 MG INJECTED IN THIGH, 1X/WEEK ON WEDNESDAYS
     Route: 058
     Dates: start: 202205
  3. COVID SHOTS AND BOOSTERS (Pfizer) [Concomitant]
  4. ULORIC [Concomitant]
     Active Substance: FEBUXOSTAT
     Dosage: UNK, DAILY
  5. INSULIN NOS [Concomitant]
     Active Substance: INSULIN NOS
     Dosage: UNK, DAILY
  6. UNSPECIFIED ANTACIDS [Concomitant]
     Dosage: UNK, DAILY
  7. UNSPECIFIED ^HEART PILLS^ [Concomitant]
     Dosage: DAILY

REACTIONS (4)
  - Heart valve operation [Recovered/Resolved]
  - Dyspnoea [Recovered/Resolved]
  - COVID-19 [Recovered/Resolved]
  - Product dose omission issue [Not Recovered/Not Resolved]

NARRATIVE: CASE EVENT DATE: 20220101
